FAERS Safety Report 11342095 (Version 1)
Quarter: 2015Q3

REPORT INFORMATION
  Report Type: Spontaneous
  Country: US (occurrence: US)
  Receive Date: 20150805
  Receipt Date: 20150805
  Transmission Date: 20151125
  Serious: No
  Sender: FDA-Public Use
  Company Number: US-BAYER-2015-393563

PATIENT
  Age: 60 Year
  Sex: Female

DRUGS (16)
  1. BUPROPION HYDROCHLORIDE. [Concomitant]
     Active Substance: BUPROPION HYDROCHLORIDE
  2. DICLOFENAC POTASSIUM. [Concomitant]
     Active Substance: DICLOFENAC POTASSIUM
  3. GABAPENTIN. [Concomitant]
     Active Substance: GABAPENTIN
  4. BETASERON [Suspect]
     Active Substance: INTERFERON BETA-1B
     Indication: MULTIPLE SCLEROSIS
     Dosage: 0.25 MG, QOD
     Route: 058
     Dates: start: 20120430
  5. TOPIRAMATE. [Concomitant]
     Active Substance: TOPIRAMATE
  6. TRAMADOL. [Concomitant]
     Active Substance: TRAMADOL
     Dosage: 50 MG, UNK
  7. NITROFURANTOIN (MACROCRYSTALS) [Concomitant]
     Active Substance: NITROFURANTOIN
  8. FLUOXETINE HCL [Concomitant]
     Active Substance: FLUOXETINE HYDROCHLORIDE
  9. DIAZEPAM. [Concomitant]
     Active Substance: DIAZEPAM
     Dosage: 5 MG, UNK
  10. METFORMIN [Concomitant]
     Active Substance: METFORMIN HYDROCHLORIDE
  11. VESICARE [Concomitant]
     Active Substance: SOLIFENACIN SUCCINATE
  12. DICLOFENAC SODIUM. [Concomitant]
     Active Substance: DICLOFENAC SODIUM
  13. AMOXICILLIN. [Concomitant]
     Active Substance: AMOXICILLIN
  14. MISOPROSTOL. [Concomitant]
     Active Substance: MISOPROSTOL
  15. METHYLPREDNISOLON [Concomitant]
     Active Substance: METHYLPREDNISOLONE
  16. FLUCONAZOLE. [Concomitant]
     Active Substance: FLUCONAZOLE

REACTIONS (3)
  - Muscle spasms [Not Recovered/Not Resolved]
  - Micturition urgency [Not Recovered/Not Resolved]
  - Myalgia [Not Recovered/Not Resolved]

NARRATIVE: CASE EVENT DATE: 20150731
